FAERS Safety Report 9571244 (Version 1)
Quarter: 2013Q3

REPORT INFORMATION
  Report Type: Spontaneous
  Country: US (occurrence: None)
  Receive Date: 20130927
  Receipt Date: 20130927
  Transmission Date: 20140515
  Serious: No
  Sender: FDA-Public Use
  Company Number: None

PATIENT
  Age: 8 Month
  Sex: Female
  Weight: 6.8 kg

DRUGS (2)
  1. BROAD SPECTRUM BROAD SPECTRUM [Suspect]
     Indication: SUNBURN
     Dates: start: 20130623, end: 20130705
  2. BROAD SPECTRUM BROAD SPECTRUM [Suspect]
     Indication: PROPHYLAXIS
     Dates: start: 20130623, end: 20130705

REACTIONS (2)
  - Rash [None]
  - Product quality issue [None]
